FAERS Safety Report 15957663 (Version 2)
Quarter: 2020Q1

REPORT INFORMATION
  Report Type: Spontaneous
  Country: US (occurrence: US)
  Receive Date: 20190213
  Receipt Date: 20200331
  Transmission Date: 20200409
  Serious: Yes (Other)
  Sender: FDA-Public Use
  Company Number: US-ASTRAZENECA-2018SF13452

PATIENT
  Age: 11503 Day
  Sex: Male
  Weight: 92.8 kg

DRUGS (28)
  1. NEXIUM [Suspect]
     Active Substance: ESOMEPRAZOLE MAGNESIUM
     Indication: GASTROOESOPHAGEAL REFLUX DISEASE
     Dosage: IN THE MORNING 30 MINUTES BEFORE BREAKFAST
     Route: 048
     Dates: start: 20130108
  2. TELMISARTAN. [Concomitant]
     Active Substance: TELMISARTAN
  3. CEPHALEXIN. [Concomitant]
     Active Substance: CEPHALEXIN
  4. AMOXICILLIN. [Concomitant]
     Active Substance: AMOXICILLIN
  5. PREVIDENT [Concomitant]
     Active Substance: SODIUM FLUORIDE
  6. CHERATUSSIN [Concomitant]
     Active Substance: AMMONIUM CHLORIDE\DEXTROMETHORPHAN\SODIUM CITRATE
  7. AZITHROMYCIN ANHYDROUS. [Concomitant]
     Active Substance: AZITHROMYCIN ANHYDROUS
  8. OMEPRAZOLE. [Concomitant]
     Active Substance: OMEPRAZOLE
     Dosage: 40.0MG UNKNOWN
     Route: 048
  9. TRAZODONE [Concomitant]
     Active Substance: TRAZODONE HYDROCHLORIDE
  10. TELMISARTAN. [Concomitant]
     Active Substance: TELMISARTAN
  11. SIMVASTATIN. [Concomitant]
     Active Substance: SIMVASTATIN
  12. NAPROXEN. [Concomitant]
     Active Substance: NAPROXEN
  13. HYDROCODONE [Concomitant]
     Active Substance: HYDROCODONE
  14. RANITIDINE. [Concomitant]
     Active Substance: RANITIDINE
  15. CIPROFLOXACIN. [Concomitant]
     Active Substance: CIPROFLOXACIN
  16. METOPROLOL. [Concomitant]
     Active Substance: METOPROLOL
  17. BENAZEPRIL [Concomitant]
     Active Substance: BENAZEPRIL HYDROCHLORIDE
  18. HYDRALAZINE [Concomitant]
     Active Substance: HYDRALAZINE HYDROCHLORIDE
  19. AMOX [Concomitant]
     Active Substance: UNSPECIFIED INGREDIENT
  20. MICARDIS [Concomitant]
     Active Substance: TELMISARTAN
  21. IRBESARTAN. [Concomitant]
     Active Substance: IRBESARTAN
  22. LISINOPRIL. [Concomitant]
     Active Substance: LISINOPRIL
  23. AZITHROMYCIN ANHYDROUS. [Concomitant]
     Active Substance: AZITHROMYCIN ANHYDROUS
  24. NEXIUM [Suspect]
     Active Substance: ESOMEPRAZOLE MAGNESIUM
     Indication: GASTROOESOPHAGEAL REFLUX DISEASE
     Route: 048
     Dates: start: 2013, end: 2017
  25. PROMETHAZINE [Concomitant]
     Active Substance: PROMETHAZINE HYDROCHLORIDE
  26. GUANFACINE. [Concomitant]
     Active Substance: GUANFACINE
  27. ONDANSETRON [Concomitant]
     Active Substance: ONDANSETRON
  28. FUROSEMIDE. [Concomitant]
     Active Substance: FUROSEMIDE

REACTIONS (4)
  - Chronic kidney disease [Not Recovered/Not Resolved]
  - Acute kidney injury [Unknown]
  - Nephrogenic anaemia [Unknown]
  - Gout [Unknown]

NARRATIVE: CASE EVENT DATE: 20150708
